FAERS Safety Report 8360895-6 (Version None)
Quarter: 2012Q2

REPORT INFORMATION
  Report Type: 
  Country: None (occurrence: None)
  Receive Date: 20120515
  Receipt Date: 20120504
  Transmission Date: 20120825
  Serious: Yes (Death, Other)
  Sender: FDA-Public Use
  Company Number: US-BRISTOL-MYERS SQUIBB COMPANY-16481392

PATIENT
  Age: 80 Year
  Sex: Male

DRUGS (1)
  1. YERVOY [Suspect]
     Indication: METASTATIC OCULAR MELANOMA
     Dosage: 04JAN2012,26JAN2012,16FEB2012. NO OF DOSES 3
     Route: 042
     Dates: start: 20120104, end: 20120216

REACTIONS (4)
  - ASPARTATE AMINOTRANSFERASE INCREASED [None]
  - NEOPLASM MALIGNANT [None]
  - DIARRHOEA [None]
  - DERMATITIS [None]
